FAERS Safety Report 5316976-4 (Version None)
Quarter: 2007Q1

REPORT INFORMATION
  Report Type: 
  Country: None (occurrence: None)
  Receive Date: 20070130
  Receipt Date: 20061128
  Transmission Date: 20070707
  Serious: No
  Sender: FDA-Public Use
  Company Number: 200619650US

PATIENT
  Age: 59 Year
  Sex: Female

DRUGS (5)
  1. KETEK [Suspect]
     Indication: SINUSITIS
     Dosage: BID PO
     Route: 048
     Dates: start: 20061124
  2. METFORMIN HCL [Concomitant]
  3. ASPIRIN [Concomitant]
  4. MULTI-VITAMIN [Concomitant]
  5. ATORVASTATIN CALCIUM (LIPITOR) [Concomitant]

REACTIONS (10)
  - BURNING SENSATION [None]
  - DIARRHOEA [None]
  - DIZZINESS [None]
  - DRY MOUTH [None]
  - DYSGEUSIA [None]
  - HEADACHE [None]
  - INSOMNIA [None]
  - MALAISE [None]
  - NAUSEA [None]
  - PARAESTHESIA [None]
